FAERS Safety Report 4873236-3 (Version None)
Quarter: 2006Q1

REPORT INFORMATION
  Report Type: 
  Country: None (occurrence: None)
  Receive Date: 20060105
  Receipt Date: 20050408
  Transmission Date: 20060701
  Serious: Yes (Hospitalization, Disabling)
  Sender: FDA-Public Use
  Company Number: US-MERCK-0504USA01592

PATIENT
  Age: 50 Year
  Sex: Female
  Weight: 89 kg

DRUGS (1)
  1. VIOXX [Suspect]
     Indication: OSTEOARTHRITIS
     Route: 048
     Dates: start: 19990101, end: 20000101

REACTIONS (4)
  - ARTHROPATHY [None]
  - BACK DISORDER [None]
  - DEPRESSION [None]
  - ISCHAEMIC STROKE [None]
